FAERS Safety Report 4643563-3 (Version None)
Quarter: 2005Q2

REPORT INFORMATION
  Report Type: 
  Country: None (occurrence: None)
  Receive Date: 20050425
  Receipt Date: 20040831
  Transmission Date: 20051028
  Serious: No
  Sender: FDA-Public Use
  Company Number: 200412809JP

PATIENT
  Age: 60 Year
  Sex: Female

DRUGS (15)
  1. ARAVA [Suspect]
     Indication: RHEUMATOID ARTHRITIS
     Route: 048
     Dates: start: 20031205, end: 20040127
  2. PREDNISOLONE [Concomitant]
     Indication: RHEUMATOID ARTHRITIS
     Route: 048
     Dates: start: 19951001
  3. ALFAROL [Concomitant]
     Indication: OSTEOPOROSIS
     Route: 048
  4. GASTER [Concomitant]
     Indication: PROPHYLAXIS AGAINST GASTROINTESTINAL ULCER
     Route: 048
  5. VOLTAREN [Concomitant]
     Indication: ARTHRALGIA
     Route: 048
  6. JUVELA NICOTINATE [Concomitant]
     Indication: PERIPHERAL VASCULAR DISORDER
     Route: 048
  7. THYRADIN S [Concomitant]
     Indication: HYPOTHYROIDISM
     Route: 048
  8. DORNER [Concomitant]
     Indication: PERIPHERAL VASCULAR DISORDER
     Route: 048
  9. BLOPRESS [Concomitant]
     Indication: HYPERTENSION
     Route: 048
     Dates: start: 20040106
  10. LENDORM [Concomitant]
     Indication: INSOMNIA
     Route: 048
  11. DEPAS [Concomitant]
     Indication: DEPRESSION
     Route: 048
  12. LORAZEPAM [Concomitant]
     Indication: DEPRESSION
     Route: 048
  13. LUDIOMIL [Concomitant]
     Indication: DEPRESSION
     Route: 048
  14. AMOBAN [Concomitant]
     Indication: INSOMNIA
     Route: 048
  15. ROHYPNOL [Concomitant]
     Indication: INSOMNIA
     Route: 048
     Dates: start: 20041001

REACTIONS (4)
  - DIARRHOEA [None]
  - HYPERTENSION [None]
  - HYPOALBUMINAEMIA [None]
  - HYPOPROTEINAEMIA [None]
